FAERS Safety Report 11714815 (Version 5)
Quarter: 2015Q4

REPORT INFORMATION
  Report Type: Spontaneous
  Country: US (occurrence: US)
  Receive Date: 20151109
  Receipt Date: 20151211
  Transmission Date: 20160304
  Serious: Yes (Other)
  Sender: FDA-Public Use
  Company Number: CHPA2015US013021

PATIENT
  Age: 77 Year
  Sex: Female

DRUGS (4)
  1. EXCEDRIN TENSION HEADACHE [Suspect]
     Active Substance: ACETAMINOPHEN\CAFFEINE
     Indication: MIGRAINE
     Dosage: UNK
     Route: 048
  2. EXCEDRIN MILD HEADACHE CAPLETS [Suspect]
     Active Substance: ACETAMINOPHEN\CAFFEINE
     Indication: MIGRAINE
     Dosage: 1 DF, BID
     Route: 065
  3. EXCEDRIN SINUS HEADACHE [Suspect]
     Active Substance: ACETAMINOPHEN\PHENYLEPHRINE
     Indication: MIGRAINE
     Dosage: UNK
     Route: 065
  4. TRAMADOL. [Suspect]
     Active Substance: TRAMADOL
     Indication: PRODUCT USED FOR UNKNOWN INDICATION
     Dosage: UNK
     Route: 065

REACTIONS (5)
  - Macular degeneration [Not Recovered/Not Resolved]
  - Gastritis erosive [Recovered/Resolved]
  - Ulcer [Unknown]
  - Therapeutic response unexpected [Unknown]
  - Off label use [Unknown]
